FAERS Safety Report 23318249 (Version 3)
Quarter: 2024Q2

REPORT INFORMATION
  Report Type: Other
  Country: BR (occurrence: BR)
  Receive Date: 20231220
  Receipt Date: 20240610
  Transmission Date: 20240716
  Serious: No
  Sender: FDA-Public Use
  Company Number: BR-TOLMAR, INC.-23BR044934

PATIENT
  Age: 8 Year
  Sex: Female

DRUGS (3)
  1. ELIGARD [Suspect]
     Active Substance: LEUPROLIDE ACETATE
     Indication: Precocious puberty
     Dosage: 45 MILLIGRAM, Q 6 MONTH
     Route: 058
     Dates: start: 202305
  2. ELIGARD [Suspect]
     Active Substance: LEUPROLIDE ACETATE
     Dosage: 45 MILLIGRAM, Q 6 MONTH
     Route: 058
     Dates: start: 20231108
  3. ELIGARD [Suspect]
     Active Substance: LEUPROLIDE ACETATE
     Indication: Precocious puberty
     Dosage: UNK

REACTIONS (4)
  - Rhinitis allergic [Recovering/Resolving]
  - Therapy interrupted [Unknown]
  - Injection site inflammation [Unknown]
  - Injection site mass [Unknown]

NARRATIVE: CASE EVENT DATE: 20231108
